FAERS Safety Report 25613372 (Version 1)
Quarter: 2025Q3

REPORT INFORMATION
  Report Type: Spontaneous
  Country: US (occurrence: None)
  Receive Date: 20250727
  Receipt Date: 20250727
  Transmission Date: 20251021
  Serious: Yes (Other)
  Sender: FDA-CTU
  Company Number: None

PATIENT
  Age: 23 Year
  Sex: Female
  Weight: 72 kg

DRUGS (11)
  1. VENLAFAXINE [Suspect]
     Active Substance: VENLAFAXINE HYDROCHLORIDE
     Indication: Depression
     Dosage: OTHER QUANTITY : 1 CAPSULE(S);?FREQUENCY : AT BEDTIME;?
     Route: 048
     Dates: start: 20240301
  2. VENLAFAXINE HYDROCHLORIDE [Suspect]
     Active Substance: VENLAFAXINE HYDROCHLORIDE
  3. Escilatalopram [Concomitant]
  4. Aurovela [Concomitant]
  5. ADDERALL [Concomitant]
     Active Substance: AMPHETAMINE ASPARTATE\AMPHETAMINE SULFATE\DEXTROAMPHETAMINE SACCHARATE\DEXTROAMPHETAMINE SULFATE
  6. DYANAVEL XR [Concomitant]
     Active Substance: AMPHETAMINE
  7. GABAPENTIN [Concomitant]
     Active Substance: GABAPENTIN
  8. DICLOFENAC [Concomitant]
     Active Substance: DICLOFENAC
  9. ADALIMUMAB [Concomitant]
     Active Substance: ADALIMUMAB
  10. Women^s One A Day Multivitamin [Concomitant]
  11. Natures Bounty Gentle Iron [Concomitant]

REACTIONS (11)
  - Fatigue [None]
  - Hypersomnia [None]
  - Impaired work ability [None]
  - Brain fog [None]
  - Dyspnoea [None]
  - Suicidal ideation [None]
  - Trichorrhexis [None]
  - Swelling face [None]
  - Nail disorder [None]
  - Back pain [None]
  - Ankylosing spondylitis [None]

NARRATIVE: CASE EVENT DATE: 20240301
